FAERS Safety Report 7653943-X (Version None)
Quarter: 2011Q3

REPORT INFORMATION
  Report Type: 
  Country: None (occurrence: None)
  Receive Date: 20110803
  Receipt Date: 20110722
  Transmission Date: 20111222
  Serious: Yes (Other)
  Sender: FDA-Public Use
  Company Number: CA-JNJFOC-20110710770

PATIENT
  Sex: Female
  Weight: 56 kg

DRUGS (1)
  1. REMICADE [Suspect]
     Indication: CROHN'S DISEASE
     Route: 042

REACTIONS (5)
  - LIP SWELLING [None]
  - SYNCOPE [None]
  - DIZZINESS [None]
  - DYSPNOEA [None]
  - ALLERGY TO ARTHROPOD BITE [None]
